FAERS Safety Report 18997557 (Version 2)
Quarter: 2021Q1

REPORT INFORMATION
  Report Type: Spontaneous
  Country: US (occurrence: US)
  Receive Date: 20210311
  Receipt Date: 20210319
  Transmission Date: 20210420
  Serious: Yes (Life-Threatening, Other)
  Sender: FDA-Public Use
  Company Number: US-PFIZER INC-2021257046

PATIENT
  Age: 2 Week
  Sex: Female
  Weight: .85 kg

DRUGS (4)
  1. ATROPINE. [Concomitant]
     Active Substance: ATROPINE
     Dosage: UNK (20 MCG/KG)
  2. ROCURONIUM BROMIDE. [Suspect]
     Active Substance: ROCURONIUM BROMIDE
     Indication: NEUROMUSCULAR BLOCKADE
     Dosage: 1.2 MG/KG
  3. ATROPINE. [Concomitant]
     Active Substance: ATROPINE
     Indication: ANAESTHESIA
     Dosage: 0.02 MG/KG
  4. PROPOFOL. [Concomitant]
     Active Substance: PROPOFOL
     Indication: ANAESTHESIA
     Dosage: 2 MG/KG

REACTIONS (3)
  - Bradycardia neonatal [Recovered/Resolved]
  - Off label use [Recovered/Resolved]
  - Neonatal hypoxia [Recovered/Resolved]
